FAERS Safety Report 18649077 (Version 1)
Quarter: 2020Q4

REPORT INFORMATION
  Report Type: Spontaneous
  Country: CN (occurrence: CN)
  Receive Date: 20201222
  Receipt Date: 20201222
  Transmission Date: 20210114
  Serious: Yes (Other)
  Sender: FDA-Public Use
  Company Number: CN-ASTRAZENECA-2020SF68039

PATIENT
  Age: 27253 Day
  Sex: Female
  Weight: 67 kg

DRUGS (2)
  1. PULMICORT RESPULES [Suspect]
     Active Substance: BUDESONIDE
     Indication: PNEUMONIA
     Route: 055
     Dates: start: 20201204, end: 20201204
  2. SODIUM CHLORIDE. [Concomitant]
     Active Substance: SODIUM CHLORIDE
     Indication: PRODUCT USED FOR UNKNOWN INDICATION
     Route: 055
     Dates: start: 20201204, end: 20201204

REACTIONS (13)
  - Muscle spasms [Recovering/Resolving]
  - Vomiting [Unknown]
  - Fall [Unknown]
  - Unresponsive to stimuli [Unknown]
  - Bruxism [Unknown]
  - Lip injury [Unknown]
  - Cyanosis [Unknown]
  - Restlessness [Unknown]
  - Respiratory rate decreased [Unknown]
  - Heart rate increased [Unknown]
  - Suffocation feeling [Unknown]
  - Loss of consciousness [Unknown]
  - Breath sounds abnormal [Unknown]

NARRATIVE: CASE EVENT DATE: 20201204
